FAERS Safety Report 5694606-X (Version None)
Quarter: 2008Q2

REPORT INFORMATION
  Report Type: 
  Country: None (occurrence: None)
  Receive Date: 20080403
  Receipt Date: 20080327
  Transmission Date: 20081010
  Serious: Yes (Life-Threatening, Hospitalization)
  Sender: FDA-Public Use
  Company Number: APP200800238

PATIENT
  Age: 58 Year
  Sex: Female
  Weight: 84 kg

DRUGS (1)
  1. HEPARIN SODIUM INJECTION [Suspect]
     Indication: INDWELLING CATHETER MANAGEMENT
     Dosage: INTRAVENOUS
     Route: 042
     Dates: start: 20080327, end: 20080327

REACTIONS (3)
  - HYPERHIDROSIS [None]
  - HYPOTENSION [None]
  - UNRESPONSIVE TO STIMULI [None]
